FAERS Safety Report 19981511 (Version 1)
Quarter: 2021Q4

REPORT INFORMATION
  Report Type: Report from Study
  Country: EG (occurrence: EG)
  Receive Date: 20211022
  Receipt Date: 20211022
  Transmission Date: 20220303
  Serious: Yes (Other)
  Sender: FDA-Public Use
  Company Number: EG-NOVARTISPH-NVSC2021EG233557

PATIENT
  Sex: Male

DRUGS (8)
  1. COSENTYX [Suspect]
     Active Substance: SECUKINUMAB
     Indication: Rheumatic disorder
     Dosage: UNK
     Route: 058
     Dates: start: 20170127, end: 201706
  2. COSENTYX [Suspect]
     Active Substance: SECUKINUMAB
     Indication: Psoriatic arthropathy
     Dosage: UNK
     Route: 065
     Dates: start: 201708, end: 202108
  3. COSENTYX [Suspect]
     Active Substance: SECUKINUMAB
     Dosage: UNK
     Route: 065
     Dates: start: 20211012
  4. NASONEX [Concomitant]
     Active Substance: MOMETASONE FUROATE
     Indication: Product used for unknown indication
     Dosage: 1 DF, BID (5 YEARS AGO)
     Route: 045
     Dates: start: 2016, end: 202108
  5. FLIX [Concomitant]
     Indication: Product used for unknown indication
     Dosage: 1 DF, BID (SPRAY)
     Route: 065
     Dates: start: 202108
  6. LORATADINE [Concomitant]
     Active Substance: LORATADINE
     Indication: Sinusitis
     Dosage: 1 DF, QD
     Route: 048
     Dates: start: 2017, end: 2021
  7. CATAFLAM [Concomitant]
     Active Substance: DICLOFENAC POTASSIUM
     Indication: Inflammatory pain
     Dosage: 1 DF, QD
     Route: 065
     Dates: start: 201701
  8. DESA [Concomitant]
     Indication: Sinusitis
     Dosage: 1 DF, QD
     Route: 048
     Dates: start: 20211009

REACTIONS (20)
  - Blood uric acid increased [Unknown]
  - Fatigue [Recovered/Resolved]
  - Arthralgia [Recovered/Resolved]
  - Peripheral swelling [Recovered/Resolved]
  - Spinal pain [Recovered/Resolved]
  - Mobility decreased [Recovered/Resolved]
  - Myalgia [Recovered/Resolved]
  - Stress [Not Recovered/Not Resolved]
  - Dysstasia [Recovered/Resolved]
  - Fatigue [Not Recovered/Not Resolved]
  - Off label use [Recovered/Resolved]
  - Product dose omission issue [Recovered/Resolved]
  - Psoriasis [Recovered/Resolved]
  - Pain [Unknown]
  - Haemoglobin decreased [Unknown]
  - Rhinitis allergic [Unknown]
  - Symptom recurrence [Unknown]
  - Nasopharyngitis [Unknown]
  - Hypersomnia [Not Recovered/Not Resolved]
  - Inappropriate schedule of product administration [Not Recovered/Not Resolved]

NARRATIVE: CASE EVENT DATE: 20170101
